FAERS Safety Report 23138440 (Version 1)
Quarter: 2023Q4

REPORT INFORMATION
  Report Type: Spontaneous
  Country: US (occurrence: US)
  Receive Date: 20231102
  Receipt Date: 20231102
  Transmission Date: 20240110
  Serious: No
  Sender: FDA-Public Use
  Company Number: US-ABBVIE-5477518

PATIENT

DRUGS (1)
  1. IMBRUVICA [Suspect]
     Active Substance: IBRUTINIB
     Indication: Product used for unknown indication
     Dosage: TABLETS OR CAPSULES SHOULD BE TAKEN ORALLY WITH A GLASS OF WATER. DO NOT OPEN, BREAK, OR CHEW THE...
     Route: 048

REACTIONS (1)
  - Dysphagia [Unknown]
